FAERS Safety Report 5648557-7 (Version None)
Quarter: 2008Q1

REPORT INFORMATION
  Report Type: 
  Country: None (occurrence: None)
  Receive Date: 20080303
  Receipt Date: 20080303
  Transmission Date: 20080703
  Serious: Yes (Other)
  Sender: FDA-Public Use
  Company Number: None

PATIENT
  Sex: Female
  Weight: 90.7194 kg

DRUGS (2)
  1. BYETTA [Suspect]
     Indication: METABOLIC SYNDROME
     Dosage: 5MG 2 TIMES DAILY CUTANEOUS
     Route: 003
     Dates: start: 20061108, end: 20080228
  2. BYETTA [Suspect]
     Indication: TYPE 2 DIABETES MELLITUS
     Dosage: 5MG 2 TIMES DAILY CUTANEOUS
     Route: 003
     Dates: start: 20061108, end: 20080228

REACTIONS (11)
  - ABASIA [None]
  - ABDOMINAL PAIN [None]
  - APHASIA [None]
  - ASTHENIA [None]
  - DIARRHOEA [None]
  - FEELING ABNORMAL [None]
  - HYPERHIDROSIS [None]
  - LOSS OF CONSCIOUSNESS [None]
  - MOTOR DYSFUNCTION [None]
  - PALLOR [None]
  - SOMNOLENCE [None]
